FAERS Safety Report 25472989 (Version 1)
Quarter: 2025Q2

REPORT INFORMATION
  Report Type: Other
  Country: CA (occurrence: CA)
  Receive Date: 20250624
  Receipt Date: 20250624
  Transmission Date: 20250716
  Serious: Yes (Hospitalization, Other)
  Sender: LUPIN
  Company Number: CA-LUPIN HEALTHCARE (UK) LIMITED-2025-05145

PATIENT
  Age: 78 Year
  Sex: Female
  Weight: 93 kg

DRUGS (105)
  1. TIOTROPIUM [Suspect]
     Active Substance: TIOTROPIUM
     Indication: Product used for unknown indication
     Route: 065
  2. PREGABALIN [Suspect]
     Active Substance: PREGABALIN
     Indication: Product used for unknown indication
  3. PREGABALIN [Suspect]
     Active Substance: PREGABALIN
  4. ACETAMINOPHEN [Suspect]
     Active Substance: ACETAMINOPHEN
     Indication: Product used for unknown indication
     Route: 065
  5. ACETAMINOPHEN [Suspect]
     Active Substance: ACETAMINOPHEN
     Indication: Arthralgia
     Route: 065
  6. ATROVENT [Suspect]
     Active Substance: IPRATROPIUM BROMIDE
     Indication: Product used for unknown indication
     Route: 065
  7. BISACODYL [Suspect]
     Active Substance: BISACODYL
     Indication: Product used for unknown indication
     Route: 065
  8. BISACODYL [Suspect]
     Active Substance: BISACODYL
     Route: 065
  9. BUDESONIDE [Suspect]
     Active Substance: BUDESONIDE
     Indication: Product used for unknown indication
  10. BUDESONIDE [Suspect]
     Active Substance: BUDESONIDE
  11. BUDESONIDE [Suspect]
     Active Substance: BUDESONIDE
     Route: 050
  12. BUDESONIDE [Suspect]
     Active Substance: BUDESONIDE
     Route: 065
  13. BUDESONIDE\FORMOTEROL FUMARATE [Suspect]
     Active Substance: BUDESONIDE\FORMOTEROL FUMARATE
     Indication: Product used for unknown indication
     Route: 065
  14. BUDESONIDE\FORMOTEROL FUMARATE [Suspect]
     Active Substance: BUDESONIDE\FORMOTEROL FUMARATE
  15. BUDESONIDE\FORMOTEROL FUMARATE [Suspect]
     Active Substance: BUDESONIDE\FORMOTEROL FUMARATE
  16. CANDESARTAN [Suspect]
     Active Substance: CANDESARTAN
     Indication: Product used for unknown indication
     Dosage: 8 MILLIGRAM, QD (1 EVERY DAY)
  17. DEXILANT [Suspect]
     Active Substance: DEXLANSOPRAZOLE
     Indication: Product used for unknown indication
     Route: 065
  18. DEXILANT [Suspect]
     Active Substance: DEXLANSOPRAZOLE
     Route: 065
  19. DOMPERIDONE [Suspect]
     Active Substance: DOMPERIDONE
     Indication: Product used for unknown indication
     Route: 065
  20. DOMPERIDONE [Suspect]
     Active Substance: DOMPERIDONE
  21. FORMOTEROL FUMARATE [Suspect]
     Active Substance: FORMOTEROL FUMARATE
     Indication: Asthma
     Route: 065
  22. FORMOTEROL FUMARATE [Suspect]
     Active Substance: FORMOTEROL FUMARATE
     Route: 065
  23. NITROGLYCERIN [Suspect]
     Active Substance: NITROGLYCERIN
     Indication: Asthma
  24. NITROGLYCERIN [Suspect]
     Active Substance: NITROGLYCERIN
     Route: 065
  25. INFLUENZA VIRUS VACCINE [Suspect]
     Active Substance: INFLUENZA VIRUS VACCINE
     Indication: Prophylaxis
     Route: 065
  26. ALBUTEROL SULFATE\IPRATROPIUM BROMIDE [Suspect]
     Active Substance: ALBUTEROL SULFATE\IPRATROPIUM BROMIDE
     Indication: Product used for unknown indication
     Route: 065
  27. JUBLIA [Suspect]
     Active Substance: EFINACONAZOLE
     Indication: Product used for unknown indication
     Route: 065
  28. JUBLIA [Suspect]
     Active Substance: EFINACONAZOLE
  29. LANSOPRAZOLE [Suspect]
     Active Substance: LANSOPRAZOLE
     Indication: Gastrooesophageal reflux disease
  30. LANSOPRAZOLE [Suspect]
     Active Substance: LANSOPRAZOLE
     Route: 065
  31. LEVOTHYROXINE SODIUM [Suspect]
     Active Substance: LEVOTHYROXINE SODIUM
     Indication: Product used for unknown indication
     Route: 065
  32. MOMETASONE [Suspect]
     Active Substance: MOMETASONE
     Indication: Gastrooesophageal reflux disease
     Route: 065
  33. MOMETASONE [Suspect]
     Active Substance: MOMETASONE
  34. MOMETASONE [Suspect]
     Active Substance: MOMETASONE
     Dosage: 10 MILLIGRAM, QD 1 EVERY DAY
  35. MOMETASONE [Suspect]
     Active Substance: MOMETASONE
     Dosage: 10 MILLIGRAM, QD  1 EVERY DAY
  36. MOMETASONE [Suspect]
     Active Substance: MOMETASONE
     Route: 065
  37. MORPHINE [Suspect]
     Active Substance: MORPHINE
     Indication: Dyspnoea
     Route: 065
  38. MORPHINE HYDROCHLORIDE [Suspect]
     Active Substance: MORPHINE HYDROCHLORIDE
     Indication: Product used for unknown indication
  39. MORPHINE HYDROCHLORIDE [Suspect]
     Active Substance: MORPHINE HYDROCHLORIDE
     Route: 065
  40. MORPHINE HYDROCHLORIDE [Suspect]
     Active Substance: MORPHINE HYDROCHLORIDE
     Route: 065
  41. MORPHINE HYDROCHLORIDE [Suspect]
     Active Substance: MORPHINE HYDROCHLORIDE
  42. NASONEX [Suspect]
     Active Substance: MOMETASONE FUROATE
     Indication: Product used for unknown indication
     Route: 065
  43. NITROGLYCERIN [Suspect]
     Active Substance: NITROGLYCERIN
     Indication: Product used for unknown indication
     Route: 065
  44. NUCALA [Suspect]
     Active Substance: MEPOLIZUMAB
     Indication: Asthma
  45. OMALIZUMAB [Suspect]
     Active Substance: OMALIZUMAB
     Indication: Asthma
     Route: 065
  46. PANTOPRAZOLE [Suspect]
     Active Substance: PANTOPRAZOLE
     Indication: Immunisation
  47. PANTOPRAZOLE [Suspect]
     Active Substance: PANTOPRAZOLE
  48. PANTOPRAZOLE [Suspect]
     Active Substance: PANTOPRAZOLE
     Route: 065
  49. PANTOPRAZOLE [Suspect]
     Active Substance: PANTOPRAZOLE
  50. PANTOPRAZOLE [Suspect]
     Active Substance: PANTOPRAZOLE
  51. PANTOPRAZOLE [Suspect]
     Active Substance: PANTOPRAZOLE
  52. PANTOPRAZOLE [Suspect]
     Active Substance: PANTOPRAZOLE
  53. PANTOPRAZOLE [Suspect]
     Active Substance: PANTOPRAZOLE
  54. PANTOPRAZOLE [Suspect]
     Active Substance: PANTOPRAZOLE
     Route: 065
  55. PANTOPRAZOLE [Suspect]
     Active Substance: PANTOPRAZOLE
     Route: 065
  56. PANTOPRAZOLE [Suspect]
     Active Substance: PANTOPRAZOLE
     Route: 065
  57. PANTOPRAZOLE [Suspect]
     Active Substance: PANTOPRAZOLE
     Route: 065
  58. PANTOPRAZOLE [Suspect]
     Active Substance: PANTOPRAZOLE
     Route: 065
  59. PANTOPRAZOLE [Suspect]
     Active Substance: PANTOPRAZOLE
  60. PANTOPRAZOLE [Suspect]
     Active Substance: PANTOPRAZOLE
     Route: 065
  61. PANTOPRAZOLE [Suspect]
     Active Substance: PANTOPRAZOLE
  62. AZITHROMYCIN ANHYDROUS [Suspect]
     Active Substance: AZITHROMYCIN ANHYDROUS
     Indication: Product used for unknown indication
     Route: 065
  63. PNEUMOCOCCAL VACCINE POLYVALENT NOS [Suspect]
     Active Substance: PNEUMOCOCCAL VACCINE, POLYVALENT
     Indication: Immunisation
     Route: 065
  64. PRAMIPEXOLE [Suspect]
     Active Substance: PRAMIPEXOLE
     Indication: Product used for unknown indication
  65. PRAMIPEXOLE [Suspect]
     Active Substance: PRAMIPEXOLE
  66. PRAMIPEXOLE [Suspect]
     Active Substance: PRAMIPEXOLE
  67. PREVACID [Suspect]
     Active Substance: LANSOPRAZOLE
     Indication: Product used for unknown indication
  68. PREVACID [Suspect]
     Active Substance: LANSOPRAZOLE
     Route: 065
  69. PREVNAR 13 [Suspect]
     Active Substance: STREPTOCOCCUS PNEUMONIAE TYPE 1 CAPSULAR POLYSACCHARIDE DIPHTHERIA CRM197 PROTEIN CONJUGATE ANTIGEN\
     Indication: Immunisation
  70. PREVNAR 13 [Suspect]
     Active Substance: STREPTOCOCCUS PNEUMONIAE TYPE 1 CAPSULAR POLYSACCHARIDE DIPHTHERIA CRM197 PROTEIN CONJUGATE ANTIGEN\
  71. PREVACID [Suspect]
     Active Substance: LANSOPRAZOLE
     Indication: Product used for unknown indication
     Route: 065
  72. PYRILAMINE MALEATE [Suspect]
     Active Substance: PYRILAMINE MALEATE
     Indication: Product used for unknown indication
     Route: 065
  73. PYRILAMINE MALEATE [Suspect]
     Active Substance: PYRILAMINE MALEATE
     Route: 065
  74. QUETIAPINE [Suspect]
     Active Substance: QUETIAPINE
     Indication: Product used for unknown indication
     Route: 065
  75. QUETIAPINE [Suspect]
     Active Substance: QUETIAPINE
  76. QUETIAPINE [Suspect]
     Active Substance: QUETIAPINE
  77. RANITIDINE HYDROCHLORIDE [Suspect]
     Active Substance: RANITIDINE HYDROCHLORIDE
     Indication: Influenza
     Route: 065
  78. RANITIDINE HYDROCHLORIDE [Suspect]
     Active Substance: RANITIDINE HYDROCHLORIDE
     Route: 065
  79. RANITIDINE HYDROCHLORIDE [Suspect]
     Active Substance: RANITIDINE HYDROCHLORIDE
     Route: 065
  80. RISEDRONIC ACID [Suspect]
     Active Substance: RISEDRONIC ACID
     Indication: Product used for unknown indication
     Route: 065
  81. RISEDRONIC ACID [Suspect]
     Active Substance: RISEDRONIC ACID
     Route: 065
  82. ROSUVASTATIN [Suspect]
     Active Substance: ROSUVASTATIN
     Indication: Product used for unknown indication
  83. ROSUVASTATIN [Suspect]
     Active Substance: ROSUVASTATIN
     Route: 065
  84. ROSUVASTATIN [Suspect]
     Active Substance: ROSUVASTATIN
  85. ALBUTEROL [Suspect]
     Active Substance: ALBUTEROL
     Indication: Product used for unknown indication
     Route: 065
  86. ALBUTEROL [Suspect]
     Active Substance: ALBUTEROL
     Route: 065
  87. SENNA LEAF [Suspect]
     Active Substance: SENNA LEAF
     Indication: Product used for unknown indication
  88. SENNOSIDES [Suspect]
     Active Substance: SENNOSIDES
     Indication: Product used for unknown indication
     Route: 065
  89. SENNOSIDES [Suspect]
     Active Substance: SENNOSIDES
     Route: 065
  90. SENNOSIDES [Suspect]
     Active Substance: SENNOSIDES
     Route: 065
  91. SENNOSIDES [Suspect]
     Active Substance: SENNOSIDES
     Route: 065
  92. SENOKOT [Suspect]
     Active Substance: SENNOSIDES
     Indication: Product used for unknown indication
  93. SENOKOT [Suspect]
     Active Substance: SENNOSIDES
  94. SENOKOT [Suspect]
     Active Substance: SENNOSIDES
     Route: 065
  95. SPIRIVA [Suspect]
     Active Substance: TIOTROPIUM BROMIDE MONOHYDRATE
     Indication: Product used for unknown indication
     Route: 065
  96. SPIRIVA [Suspect]
     Active Substance: TIOTROPIUM BROMIDE MONOHYDRATE
     Route: 065
  97. MORPHINE SULFATE [Suspect]
     Active Substance: MORPHINE SULFATE
     Indication: Product used for unknown indication
  98. SYNTHROID [Suspect]
     Active Substance: LEVOTHYROXINE SODIUM
     Indication: Product used for unknown indication
     Route: 065
  99. TRAZODONE [Suspect]
     Active Substance: TRAZODONE HYDROCHLORIDE
     Indication: Product used for unknown indication
  100. TRAZODONE [Suspect]
     Active Substance: TRAZODONE HYDROCHLORIDE
  101. TRAZODONE [Suspect]
     Active Substance: TRAZODONE HYDROCHLORIDE
  102. TRAZODONE [Suspect]
     Active Substance: TRAZODONE HYDROCHLORIDE
     Route: 065
  103. VENTOLIN [Suspect]
     Active Substance: ALBUTEROL SULFATE
     Indication: Asthma
     Route: 065
  104. VITAMIN D [Suspect]
     Active Substance: VITAMIN D NOS
     Indication: Product used for unknown indication
  105. ZOPICLONE [Suspect]
     Active Substance: ZOPICLONE
     Indication: Product used for unknown indication
     Route: 065

REACTIONS (43)
  - Abdominal pain upper [Unknown]
  - Anaemia [Unknown]
  - Aspiration [Unknown]
  - Asthenia [Unknown]
  - Asthma [Unknown]
  - Blood calcium increased [Unknown]
  - Blood creatinine increased [Unknown]
  - Blood test abnormal [Unknown]
  - Bronchiectasis [Unknown]
  - Bronchopulmonary aspergillosis allergic [Unknown]
  - Constipation [Unknown]
  - Cough [Unknown]
  - Drug hypersensitivity [Unknown]
  - Drug ineffective [Unknown]
  - Dyspnoea [Unknown]
  - Fatigue [Unknown]
  - Gastrooesophageal reflux disease [Unknown]
  - General physical health deterioration [Unknown]
  - Haemoptysis [Unknown]
  - Headache [Unknown]
  - Hypoxia [Unknown]
  - Liver function test increased [Unknown]
  - Lower respiratory tract infection [Unknown]
  - Lung opacity [Unknown]
  - Musculoskeletal stiffness [Unknown]
  - Obstructive airways disorder [Unknown]
  - Oedema peripheral [Unknown]
  - Pain [Unknown]
  - Pleural effusion [Unknown]
  - Pleuritic pain [Unknown]
  - Pneumococcal infection [Unknown]
  - Pneumonia [Unknown]
  - Product dose omission issue [Unknown]
  - Pulmonary fibrosis [Unknown]
  - Pulmonary mass [Unknown]
  - Pyrexia [Unknown]
  - Rales [Unknown]
  - Sputum discoloured [Unknown]
  - Total lung capacity decreased [Unknown]
  - Transaminases increased [Unknown]
  - Tremor [Unknown]
  - Upper respiratory tract infection [Unknown]
  - Wheezing [Unknown]
